FAERS Safety Report 8894192 (Version 2)
Quarter: 2012Q4

REPORT INFORMATION
  Report Type: 
  Country: US (occurrence: US)
  Receive Date: 20121108
  Receipt Date: 20121203
  Transmission Date: 20130627
  Serious: Yes (Other)
  Sender: FDA-Public Use
  Company Number: US-PFIZER INC-2012274921

PATIENT
  Age: 82 Year
  Sex: Female
  Weight: 41.72 kg

DRUGS (4)
  1. DETROL LA [Suspect]
     Indication: FREQUENCY URINARY
     Dosage: 4 mg, 1x/day
     Route: 048
  2. LIPITOR [Suspect]
     Indication: HIGH CHOLESTEROL
     Dosage: 30 mg (by taking 1 tablet of 10mg and one tablet of 20mg at a time), 1x/day
     Route: 048
  3. ARMOUR THYROID [Concomitant]
     Dosage: UNK
  4. HYDROCODONE [Concomitant]
     Indication: PAIN
     Dosage: 10 mg, 2x/day

REACTIONS (2)
  - Lung neoplasm malignant [Unknown]
  - Weight decreased [Unknown]
